FAERS Safety Report 5376356-2 (Version None)
Quarter: 2007Q3

REPORT INFORMATION
  Report Type: 
  Country: None (occurrence: None)
  Receive Date: 20070702
  Receipt Date: 20070620
  Transmission Date: 20080115
  Serious: Yes (Other)
  Sender: FDA-Public Use
  Company Number: US-PFIZER INC-2007040747

PATIENT
  Sex: Female
  Weight: 63.6 kg

DRUGS (5)
  1. CHANTIX [Suspect]
     Indication: SMOKING CESSATION THERAPY
     Dates: start: 20070515, end: 20070517
  2. XANAX [Suspect]
     Indication: ANXIETY
     Dosage: DAILY DOSE:3MG
  3. XANAX [Suspect]
     Indication: SLEEP DISORDER
  4. ACYCLOVIR [Concomitant]
  5. PAXIL [Concomitant]

REACTIONS (12)
  - ACTIVITIES OF DAILY LIVING IMPAIRED [None]
  - DRUG INEFFECTIVE [None]
  - DYSGEUSIA [None]
  - DYSPNOEA [None]
  - FEELING ABNORMAL [None]
  - FEELING JITTERY [None]
  - FLATULENCE [None]
  - LUNG DISORDER [None]
  - NIGHTMARE [None]
  - SLEEP DISORDER [None]
  - TOOTHACHE [None]
  - UNEVALUABLE EVENT [None]
